FAERS Safety Report 6199309-3 (Version None)
Quarter: 2009Q2

REPORT INFORMATION
  Report Type: 
  Country: None (occurrence: None)
  Receive Date: 20090520
  Receipt Date: 20090520
  Transmission Date: 20091009
  Serious: Yes (Life-Threatening, Hospitalization, Disabling, Other)
  Sender: FDA-Public Use
  Company Number: None

PATIENT
  Age: 34 Year
  Sex: Female
  Weight: 67.1324 kg

DRUGS (2)
  1. YAZ [Suspect]
     Indication: HYPOMENORRHOEA
     Dosage: ONE TABLET DAILY PO
     Route: 048
     Dates: start: 20090419, end: 20090505
  2. .. [Suspect]

REACTIONS (2)
  - ECONOMIC PROBLEM [None]
  - THROMBOSIS [None]
